FAERS Safety Report 21268287 (Version 1)
Quarter: 2022Q3

REPORT INFORMATION
  Report Type: Spontaneous
  Country: US (occurrence: US)
  Receive Date: 20220830
  Receipt Date: 20220830
  Transmission Date: 20221027
  Serious: No
  Sender: FDA-Public Use
  Company Number: US-JNJFOC-20220849758

PATIENT
  Age: 57 Year
  Sex: Female

DRUGS (2)
  1. PEPCID AC [Suspect]
     Active Substance: FAMOTIDINE
     Indication: Dyspepsia
     Dosage: 1 TABLET
     Route: 048
     Dates: start: 202208
  2. PEPCID AC [Suspect]
     Active Substance: FAMOTIDINE
     Dosage: SOMETIMES TAKING TWO TABLETS
     Route: 048
     Dates: start: 202208

REACTIONS (1)
  - Drug ineffective [Unknown]
